FAERS Safety Report 16269135 (Version 5)
Quarter: 2021Q2

REPORT INFORMATION
  Report Type: Report from Study
  Country: BE (occurrence: BE)
  Receive Date: 20190503
  Receipt Date: 20210601
  Transmission Date: 20210716
  Serious: Yes (Death, Hospitalization)
  Sender: FDA-Public Use
  Company Number: BE-ROCHE-2306474

PATIENT
  Age: 58 Year
  Sex: Female
  Weight: 57.2 kg

DRUGS (24)
  1. LITICAN [Concomitant]
     Active Substance: ALIZAPRIDE HYDROCHLORIDE
     Indication: PREMEDICATION
     Route: 042
     Dates: start: 20190506, end: 20190506
  2. RO6874281 (FAP IL2V MAB) [Suspect]
     Active Substance: SIMLUKAFUSP ALFA
     Indication: OESOPHAGEAL SQUAMOUS CELL CARCINOMA
     Dosage: MOST RECENT DOSE AT 14.27
     Route: 042
     Dates: start: 20190415
  3. DICLOFENAC [Concomitant]
     Active Substance: DICLOFENAC
     Indication: PYREXIA
     Route: 042
     Dates: start: 20190416, end: 20190416
  4. PARACETAMOL [Concomitant]
     Active Substance: ACETAMINOPHEN
     Indication: TUMOUR PAIN
     Route: 042
     Dates: start: 20190416, end: 20190416
  5. PARACETAMOL [Concomitant]
     Active Substance: ACETAMINOPHEN
     Dates: start: 20190417, end: 20190417
  6. TEMESTA EXPIDET [Concomitant]
     Active Substance: LORAZEPAM
     Indication: INSOMNIA
     Dates: start: 20190418, end: 20190418
  7. PARACETAMOL [Concomitant]
     Active Substance: ACETAMINOPHEN
     Route: 042
     Dates: start: 20190506, end: 20190506
  8. DAFALGAN [Concomitant]
     Active Substance: ACETAMINOPHEN
     Indication: CHEST PAIN
     Route: 048
     Dates: start: 20190418, end: 20190418
  9. CISPLATINUM [Concomitant]
     Active Substance: CISPLATIN
     Dates: start: 20190109, end: 20190318
  10. PANTOPRAZOLE [Concomitant]
     Active Substance: PANTOPRAZOLE
     Dates: start: 20190305
  11. PARACETAMOL [Concomitant]
     Active Substance: ACETAMINOPHEN
     Dates: start: 20190301, end: 20190611
  12. DENTIO [Concomitant]
     Indication: PERIODONTAL DISEASE
     Dates: start: 201809, end: 20190701
  13. ZANTAC [Concomitant]
     Active Substance: RANITIDINE HYDROCHLORIDE
     Indication: PREMEDICATION
     Route: 042
     Dates: start: 20190506, end: 20190506
  14. PARACETAMOL [Concomitant]
     Active Substance: ACETAMINOPHEN
     Indication: CHEST PAIN
     Route: 042
     Dates: start: 201809, end: 20190228
  15. PARACETAMOL [Concomitant]
     Active Substance: ACETAMINOPHEN
     Indication: PYREXIA
     Route: 042
     Dates: start: 20190415, end: 20190415
  16. OMEPRAZOLE. [Concomitant]
     Active Substance: OMEPRAZOLE
     Dates: start: 20190418, end: 20190418
  17. DICLOFENAC [Concomitant]
     Active Substance: DICLOFENAC
     Route: 042
     Dates: start: 20190415, end: 20190415
  18. NIQUITIN [Concomitant]
     Active Substance: NICOTINE
     Dates: start: 20190416, end: 20190601
  19. TAVEGYL [Concomitant]
     Active Substance: CLEMASTINE FUMARATE
     Dosage: 2 MG/ 2 ML
     Route: 042
     Dates: start: 20190506, end: 20190506
  20. MOVICOL [Concomitant]
     Active Substance: POLYETHYLENE GLYCOL 3350\POTASSIUM CHLORIDE\SODIUM BICARBONATE\SODIUM CHLORIDE
     Indication: CONSTIPATION
     Dates: start: 201809
  21. NIQUITIN [Concomitant]
     Active Substance: NICOTINE
     Dates: start: 201811, end: 20190415
  22. ATEZOLIZUMAB. [Suspect]
     Active Substance: ATEZOLIZUMAB
     Indication: OESOPHAGEAL SQUAMOUS CELL CARCINOMA
     Dosage: MOST RECENT DOSE AT 11.20 AM?12:20 PM
     Route: 042
     Dates: start: 20190415
  23. TAVEGYL [Concomitant]
     Active Substance: CLEMASTINE FUMARATE
     Indication: PREMEDICATION
     Dosage: 2 MG/ 2 ML
     Route: 042
     Dates: start: 20190415, end: 20190415
  24. AUGMENTIN [Concomitant]
     Active Substance: AMOXICILLIN\CLAVULANATE POTASSIUM
     Indication: PYREXIA
     Dosage: 1G/200MG
     Dates: start: 20190417, end: 20190418

REACTIONS (3)
  - Acute kidney injury [Recovered/Resolved]
  - Alanine aminotransferase increased [Recovered/Resolved]
  - Aspartate aminotransferase increased [Recovered/Resolved]

NARRATIVE: CASE EVENT DATE: 20190417
